FAERS Safety Report 13864758 (Version 5)
Quarter: 2017Q4

REPORT INFORMATION
  Report Type: Report from Study
  Country: US (occurrence: US)
  Receive Date: 20170814
  Receipt Date: 20171024
  Transmission Date: 20180320
  Serious: Yes (Hospitalization, Other)
  Sender: FDA-Public Use
  Company Number: US-GILEAD-2017-0287843

PATIENT
  Age: 54 Year
  Sex: Female

DRUGS (8)
  1. REMODULIN [Suspect]
     Active Substance: TREPROSTINIL
     Dosage: 10 MG, UNK
     Route: 065
  2. ADCIRCA [Concomitant]
     Active Substance: TADALAFIL
     Dates: start: 20150409
  3. ADCIRCA [Concomitant]
     Active Substance: TADALAFIL
  4. AMBRISENTAN [Suspect]
     Active Substance: AMBRISENTAN
     Indication: PULMONARY HYPERTENSION
  5. REMODULIN [Suspect]
     Active Substance: TREPROSTINIL
     Indication: PULMONARY ARTERIAL HYPERTENSION
     Dosage: 85.5 NG/KG, Q1 MINUTE
     Route: 058
     Dates: start: 20140722
  6. AMBRISENTAN [Suspect]
     Active Substance: AMBRISENTAN
     Indication: PULMONARY ARTERIAL HYPERTENSION
     Dosage: 5 MG, QD
     Route: 065
     Dates: start: 20150407, end: 20170930
  7. ADCIRCA [Concomitant]
     Active Substance: TADALAFIL
     Indication: PULMONARY HYPERTENSION
     Dates: start: 2015
  8. HYDROCHLOROTHIAZIDE. [Concomitant]
     Active Substance: HYDROCHLOROTHIAZIDE

REACTIONS (8)
  - Pulmonary arterial hypertension [Unknown]
  - Dyspnoea [Recovering/Resolving]
  - Dyspnoea [Recovered/Resolved]
  - Oedema [Recovered/Resolved]
  - Dizziness [Recovering/Resolving]
  - Fluid retention [Recovering/Resolving]
  - Cough [Recovering/Resolving]
  - Oxygen saturation decreased [Recovering/Resolving]

NARRATIVE: CASE EVENT DATE: 20170908
